FAERS Safety Report 23021742 (Version 2)
Quarter: 2023Q4

REPORT INFORMATION
  Report Type: Spontaneous
  Country: DE (occurrence: DE)
  Receive Date: 20231003
  Receipt Date: 20231011
  Transmission Date: 20240110
  Serious: Yes (Hospitalization)
  Sender: FDA-Public Use
  Company Number: DE-SANDOZ-SDZ2023DE029745

PATIENT
  Age: 80 Year
  Sex: Female

DRUGS (2)
  1. METHOTREXATE [Interacting]
     Active Substance: METHOTREXATE
     Indication: Rheumatoid arthritis
     Dosage: 15 MILLIGRAM, QW (WEEKLY)
     Route: 048
  2. METAMIZOLE [Interacting]
     Active Substance: METAMIZOLE
     Indication: Pain
     Dosage: 500 MILLIGRAM, QID
     Route: 048

REACTIONS (3)
  - Anaemia [Unknown]
  - Mouth ulceration [Unknown]
  - Potentiating drug interaction [Recovered/Resolved]
